FAERS Safety Report 18639953 (Version 1)
Quarter: 2020Q4

REPORT INFORMATION
  Report Type: Spontaneous
  Country: US (occurrence: US)
  Receive Date: 20201220
  Receipt Date: 20201220
  Transmission Date: 20210114
  Serious: No
  Sender: FDA-Public Use
  Company Number: US-PACIRA-202000143

PATIENT
  Age: 29 Year
  Sex: Male

DRUGS (1)
  1. EXPAREL [Suspect]
     Active Substance: BUPIVACAINE
     Indication: TOOTH EXTRACTION
     Dosage: EXP. DATE 12/21
     Route: 065
     Dates: start: 20200501, end: 20200501

REACTIONS (2)
  - Drug ineffective [Unknown]
  - Procedural pain [Unknown]

NARRATIVE: CASE EVENT DATE: 20200501
